FAERS Safety Report 12636842 (Version 1)
Quarter: 2016Q3

REPORT INFORMATION
  Report Type: Spontaneous
  Country: IT (occurrence: IT)
  Receive Date: 20160809
  Receipt Date: 20160809
  Transmission Date: 20161109
  Serious: Yes (Hospitalization)
  Sender: FDA-Public Use
  Company Number: IT-PFIZER INC-2016375570

PATIENT
  Age: 92 Year
  Sex: Female

DRUGS (1)
  1. TIGECYCLINE. [Suspect]
     Active Substance: TIGECYCLINE
     Indication: WOUND INFECTION
     Dosage: 100 MG, DAILY
     Route: 042
     Dates: start: 20160728, end: 20160803

REACTIONS (3)
  - Oedema [Recovering/Resolving]
  - Wound complication [Recovering/Resolving]
  - Medical device site joint erythema [Recovering/Resolving]

NARRATIVE: CASE EVENT DATE: 20160801
